FAERS Safety Report 25938668 (Version 1)
Quarter: 2025Q4

REPORT INFORMATION
  Report Type: Spontaneous
  Country: US (occurrence: US)
  Receive Date: 20251019
  Receipt Date: 20251019
  Transmission Date: 20260117
  Serious: No
  Sender: DR REDDYS
  Company Number: US-MLMSERVICE-20251001-PI663255-00129-1

PATIENT
  Age: 15 Year
  Sex: Female

DRUGS (1)
  1. DOXYCYCLINE [Suspect]
     Active Substance: DOXYCYCLINE
     Indication: Acne
     Route: 048

REACTIONS (1)
  - Photosensitivity reaction [Recovered/Resolved]
